FAERS Safety Report 4700638-8 (Version None)
Quarter: 2005Q2

REPORT INFORMATION
  Report Type: 
  Country: None (occurrence: None)
  Receive Date: 20050627
  Receipt Date: 20050614
  Transmission Date: 20051028
  Serious: Yes (Death)
  Sender: FDA-Public Use
  Company Number: 2005068835

PATIENT
  Sex: Female

DRUGS (4)
  1. DOXAZOSIN (DOXAZOSIN) [Suspect]
     Indication: ILL-DEFINED DISORDER
     Dosage: ORAL
     Route: 048
  2. ATACAND [Concomitant]
  3. GLUTRIL (GLIBORNURIDE) [Concomitant]
  4. MINIPRESS [Concomitant]

REACTIONS (7)
  - DRY SKIN [None]
  - ERYTHEMA [None]
  - GASTRIC VARICES HAEMORRHAGE [None]
  - IMPAIRED HEALING [None]
  - OEDEMA PERIPHERAL [None]
  - SKIN DISORDER [None]
  - SKIN INFLAMMATION [None]
